FAERS Safety Report 17915133 (Version 5)
Quarter: 2020Q4

REPORT INFORMATION
  Report Type: Spontaneous
  Country: US (occurrence: US)
  Receive Date: 20200618
  Receipt Date: 20201029
  Transmission Date: 20210113
  Serious: Yes (Hospitalization)
  Sender: FDA-Public Use
  Company Number: US-BLUEPRINT MEDICINES CORPORATION-SP-US-2020-000699

PATIENT
  Age: 87 Year
  Sex: Female

DRUGS (2)
  1. AYVAKIT [Suspect]
     Active Substance: AVAPRITINIB
     Indication: MALIGNANT CONNECTIVE TISSUE NEOPLASM
     Route: 048
     Dates: start: 20200614
  2. AYVAKIT [Suspect]
     Active Substance: AVAPRITINIB
     Indication: SOFT TISSUE SARCOMA

REACTIONS (10)
  - Mood altered [Unknown]
  - Pneumonia [Unknown]
  - Abdominal pain upper [Unknown]
  - Ascites [Unknown]
  - Irritability [Unknown]
  - Pleural effusion [Unknown]
  - Off label use [Not Recovered/Not Resolved]
  - Nausea [Unknown]
  - Vomiting [Unknown]
  - Decreased appetite [Unknown]

NARRATIVE: CASE EVENT DATE: 20200614
